FAERS Safety Report 13791497 (Version 1)
Quarter: 2017Q3

REPORT INFORMATION
  Report Type: Spontaneous
  Country: US (occurrence: US)
  Receive Date: 20170725
  Receipt Date: 20170725
  Transmission Date: 20171127
  Serious: No
  Sender: FDA-Public Use
  Company Number: US-BAYER-2017-136776

PATIENT
  Age: 91 Year
  Sex: Female
  Weight: 39 kg

DRUGS (6)
  1. ATIVAN [Concomitant]
     Active Substance: LORAZEPAM
  2. MIRALAX [Suspect]
     Active Substance: POLYETHYLENE GLYCOL 3350
     Indication: GASTROINTESTINAL DISORDER
     Dosage: 1 DOSE
     Route: 048
     Dates: start: 20170714
  3. METOPROLOL. [Concomitant]
     Active Substance: METOPROLOL
  4. VITAMIN D [Concomitant]
     Active Substance: CHOLECALCIFEROL
  5. BAYER LOW DOSE [Concomitant]
     Active Substance: ASPIRIN
     Indication: ANTICOAGULANT THERAPY
  6. PLAVIX [Concomitant]
     Active Substance: CLOPIDOGREL BISULFATE

REACTIONS (4)
  - Faeces hard [Not Recovered/Not Resolved]
  - Off label use [None]
  - Drug effect incomplete [Unknown]
  - Somnolence [None]

NARRATIVE: CASE EVENT DATE: 20170714
